FAERS Safety Report 7733107-1 (Version None)
Quarter: 2011Q3

REPORT INFORMATION
  Report Type: 
  Country: None (occurrence: None)
  Receive Date: 20110907
  Receipt Date: 20110829
  Transmission Date: 20111222
  Serious: Yes (Other)
  Sender: FDA-Public Use
  Company Number: JP-MERCK-1106USA01839

PATIENT
  Age: 50 Year
  Sex: Male

DRUGS (7)
  1. ASPIRIN [Concomitant]
     Route: 065
     Dates: start: 20110201
  2. CRESTOR [Concomitant]
     Route: 065
     Dates: start: 20110201
  3. JANUVIA [Suspect]
     Indication: TYPE 2 DIABETES MELLITUS
     Route: 048
     Dates: start: 20101101
  4. PLAVIX [Concomitant]
     Route: 065
     Dates: start: 20110201
  5. RABEPRAZOLE SODIUM [Concomitant]
     Route: 065
     Dates: start: 20110201
  6. VASOTEC [Concomitant]
     Route: 048
     Dates: start: 20110201
  7. TRICOR [Concomitant]
     Route: 065
     Dates: start: 20110201

REACTIONS (1)
  - INTERSTITIAL LUNG DISEASE [None]
